FAERS Safety Report 5518156-6 (Version None)
Quarter: 2007Q4

REPORT INFORMATION
  Report Type: 
  Country: None (occurrence: None)
  Receive Date: 20071115
  Receipt Date: 20071106
  Transmission Date: 20080405
  Serious: Yes (Hospitalization)
  Sender: FDA-Public Use
  Company Number: FR-AVENTIS-200713516FR

PATIENT
  Age: 36 Year
  Sex: Female

DRUGS (2)
  1. BIRODOGYL [Suspect]
     Route: 048
     Dates: start: 20070528, end: 20070528
  2. ADVIL LIQUI-GELS [Suspect]
     Route: 048
     Dates: start: 20070527, end: 20070527

REACTIONS (1)
  - ACUTE GENERALISED EXANTHEMATOUS PUSTULOSIS [None]
